FAERS Safety Report 17223492 (Version 2)
Quarter: 2021Q1

REPORT INFORMATION
  Report Type: Report from Study
  Country: US (occurrence: US)
  Receive Date: 20200102
  Receipt Date: 20210322
  Transmission Date: 20210419
  Serious: No
  Sender: FDA-Public Use
  Company Number: US-SHIRE-US201945503

PATIENT
  Age: 67 Year
  Sex: Female

DRUGS (5)
  1. LANADELUMAB [Suspect]
     Active Substance: LANADELUMAB
     Indication: PRODUCT USED FOR UNKNOWN INDICATION
     Dosage: 30MG/2ML, 1X/2WKS
     Route: 058
     Dates: start: 20190115
  2. FIRAZYR [Suspect]
     Active Substance: ICATIBANT ACETATE
     Indication: PRODUCT USED FOR UNKNOWN INDICATION
     Dosage: 300MG/3ML, AS REQ^D
     Route: 058
     Dates: start: 20120824
  3. FIRAZYR [Suspect]
     Active Substance: ICATIBANT ACETATE
     Indication: PRODUCT USED FOR UNKNOWN INDICATION
     Dosage: 300MG/3ML, AS REQ^D
     Route: 058
     Dates: start: 20120824
  4. FIRAZYR [Suspect]
     Active Substance: ICATIBANT ACETATE
     Dosage: 30MG/3ML, PRN
     Route: 058
     Dates: start: 20120824
  5. FIRAZYR [Suspect]
     Active Substance: ICATIBANT ACETATE
     Dosage: 30MG/3ML, PRN
     Route: 058
     Dates: start: 20120824

REACTIONS (3)
  - Upper respiratory tract infection [Recovered/Resolved]
  - Inappropriate schedule of product administration [Recovered/Resolved]
  - Off label use [Unknown]

NARRATIVE: CASE EVENT DATE: 20210210
